FAERS Safety Report 8380312 (Version 2)
Quarter: 2013Q1

REPORT INFORMATION
  Report Type: Report from Study
  Country: PR (occurrence: PR)
  Receive Date: 20120129
  Receipt Date: 20130201
  Transmission Date: 20140127
  Serious: No
  Sender: FDA-Public Use
  Company Number: PR-ABBOTT-11P-131-0887418-00

PATIENT
  Sex: Female
  Weight: 68.1 kg

DRUGS (11)
  1. HUMIRA [Suspect]
     Indication: RHEUMATOID ARTHRITIS
     Route: 058
  2. HUMIRA [Suspect]
  3. ZYRTEC [Concomitant]
     Indication: SINUSITIS
     Dosage: 1 TABLET DAILY AS NEEDED
     Route: 048
  4. BENADRYL [Concomitant]
     Indication: PRODUCT USED FOR UNKNOWN INDICATION
     Dosage: 1 TAB BEFORE HUMIRA ADMINISTRATION
     Route: 048
  5. BENADRYL [Concomitant]
     Dosage: 1 TAB BEFORE HUMIRA ADMINISTRATION
  6. METHOTREXATE [Concomitant]
     Indication: RHEUMATOID ARTHRITIS
     Dosage: 8 TABLETS WEEKLY
     Route: 048
     Dates: start: 2004
  7. FOLIC ACID [Concomitant]
     Indication: RHEUMATOID ARTHRITIS
     Dosage: 1 TABLET DAILY
     Route: 048
     Dates: start: 2004
  8. SKELAXIN [Concomitant]
     Indication: RHEUMATOID ARTHRITIS
     Dosage: 1 TAB DAILY BY 2-3 DAYS AS NEEDED
     Route: 048
  9. NEURONTIN [Concomitant]
     Indication: NEUROPATHY PERIPHERAL
     Route: 048
  10. NEURONTIN [Concomitant]
     Dosage: 1 TABLET AT BEDTIME
     Dates: start: 2008
  11. EVISTA [Concomitant]
     Indication: PRODUCT USED FOR UNKNOWN INDICATION
     Route: 048

REACTIONS (4)
  - Sinusitis [Recovered/Resolved]
  - Infection [Recovered/Resolved]
  - Injection site erythema [Recovered/Resolved]
  - Injection site pruritus [Unknown]
